FAERS Safety Report 11195088 (Version 1)
Quarter: 2015Q2

REPORT INFORMATION
  Report Type: Spontaneous
  Country: JP (occurrence: None)
  Receive Date: 20150615
  Receipt Date: 20150615
  Transmission Date: 20150821
  Serious: Yes (Hospitalization)
  Sender: FDA-Public Use
  Company Number: FK201502778

PATIENT
  Age: 67 Year
  Sex: Male

DRUGS (6)
  1. XELODA [Suspect]
     Active Substance: CAPECITABINE
     Indication: LYMPHOMA
  2. CISPLATIN (MANUFACTURER UNKNOWN) (CISPLATIN) (CISPLATIN) [Suspect]
     Active Substance: CISPLATIN
     Indication: CANCER SURGERY
  3. TRASTUZUMAB [Suspect]
     Active Substance: TRASTUZUMAB
     Indication: LYMPHOMA
  4. TRASTUZUMAB [Suspect]
     Active Substance: TRASTUZUMAB
     Indication: CANCER SURGERY
  5. CISPLATIN (MANUFACTURER UNKNOWN) (CISPLATIN) (CISPLATIN) [Suspect]
     Active Substance: CISPLATIN
     Indication: LYMPHOMA
  6. XELODA [Suspect]
     Active Substance: CAPECITABINE
     Indication: CANCER SURGERY

REACTIONS (3)
  - Palmar-plantar erythrodysaesthesia syndrome [None]
  - Embolism [None]
  - Interstitial lung disease [None]
